FAERS Safety Report 20659857 (Version 1)
Quarter: 2022Q1

REPORT INFORMATION
  Report Type: Spontaneous
  Country: US (occurrence: None)
  Receive Date: 20220328
  Receipt Date: 20220328
  Transmission Date: 20220423
  Serious: Yes (Hospitalization)
  Sender: FDA-Public Use
  Company Number: None

PATIENT
  Age: 78 Year
  Sex: Male
  Weight: 88 kg

DRUGS (9)
  1. DIETARY SUPPLEMENT [Suspect]
     Active Substance: DIETARY SUPPLEMENT
     Indication: Arthralgia
     Dosage: 2 DF 3 TIMES A DAY ORAL?
     Route: 048
     Dates: start: 20220321, end: 20220325
  2. WARFARIN [Suspect]
     Active Substance: WARFARIN
     Dates: start: 20130207
  3. METHOTREXATE [Concomitant]
     Active Substance: METHOTREXATE
  4. RITUXIMAB [Concomitant]
     Active Substance: RITUXIMAB
  5. PREDNISONE [Concomitant]
     Active Substance: PREDNISONE
  6. DIETARY SUPPLEMENT [Concomitant]
     Active Substance: DIETARY SUPPLEMENT
  7. TRAZODONE [Concomitant]
     Active Substance: TRAZODONE HYDROCHLORIDE
  8. FOLIC ACID [Concomitant]
     Active Substance: FOLIC ACID
  9. GABAPENTIN [Concomitant]
     Active Substance: GABAPENTIN

REACTIONS (5)
  - Rectal haemorrhage [None]
  - Haematemesis [None]
  - Haemoglobin decreased [None]
  - Gastric ulcer [None]
  - Haemorrhoids [None]

NARRATIVE: CASE EVENT DATE: 20220325
